FAERS Safety Report 6161022-6 (Version None)
Quarter: 2009Q2

REPORT INFORMATION
  Report Type: 
  Country: None (occurrence: None)
  Receive Date: 20090420
  Receipt Date: 20090408
  Transmission Date: 20091009
  Serious: Yes (Hospitalization, Other)
  Sender: FDA-Public Use
  Company Number: BR-PFIZER INC-2009191971

PATIENT

DRUGS (10)
  1. SUNITINIB MALATE [Suspect]
     Indication: RENAL CELL CARCINOMA
     Dosage: 50 MG, 1X/DAY
     Route: 048
     Dates: start: 20061219
  2. SIMVASTATIN [Concomitant]
     Dosage: UNK
     Route: 048
     Dates: start: 19970615
  3. CIPROFIBRATE [Concomitant]
     Dosage: UNK
     Route: 048
     Dates: start: 19970615
  4. EZETIMIBE [Concomitant]
     Dosage: UNK
     Route: 048
     Dates: start: 19970615
  5. METFORMIN [Concomitant]
     Dosage: UNK
     Route: 048
     Dates: start: 20000115
  6. GLIMEPIRIDE [Concomitant]
     Dosage: UNK
     Route: 048
     Dates: start: 20030115
  7. LEVOTHYROXINE [Concomitant]
     Dosage: UNK
     Route: 048
     Dates: start: 20070930
  8. OMEPRAZOLE [Concomitant]
     Dosage: UNK
     Route: 048
     Dates: start: 20070215
  9. PARACETAMOL [Concomitant]
     Dosage: UNK
     Route: 048
     Dates: start: 20070127
  10. ACETYLSALICYLIC ACID [Concomitant]
     Dosage: UNK
     Route: 048
     Dates: start: 20071009

REACTIONS (1)
  - ANAL ABSCESS [None]
